FAERS Safety Report 7520310-9 (Version None)
Quarter: 2011Q2

REPORT INFORMATION
  Report Type: 
  Country: None (occurrence: None)
  Receive Date: 20110602
  Receipt Date: 20110104
  Transmission Date: 20111010
  Serious: No
  Sender: FDA-Public Use
  Company Number: US-BAYER-2011-003254

PATIENT
  Age: 34 Year
  Sex: Female

DRUGS (1)
  1. MAGNEVIST [Suspect]
     Indication: NUCLEAR MAGNETIC RESONANCE IMAGING
     Dosage: 11ML IV
     Route: 042
     Dates: start: 20101214, end: 20101214

REACTIONS (2)
  - NAUSEA [None]
  - FEELING HOT [None]
